FAERS Safety Report 5279920-4 (Version None)
Quarter: 2007Q1

REPORT INFORMATION
  Report Type: 
  Country: None (occurrence: None)
  Receive Date: 20070329
  Receipt Date: 20070328
  Transmission Date: 20070707
  Serious: Yes (Life-Threatening)
  Sender: FDA-Public Use
  Company Number: US-BRISTOL-MYERS SQUIBB COMPANY-13729124

PATIENT
  Age: 62 Year
  Sex: Male
  Weight: 118 kg

DRUGS (1)
  1. DEFINITY [Suspect]
     Indication: ECHOCARDIOGRAM
     Dosage: DILUTED BOLUS
     Route: 040
     Dates: start: 20070327, end: 20070327

REACTIONS (2)
  - COMA [None]
  - RESPIRATORY ARREST [None]
